FAERS Safety Report 21644024 (Version 2)
Quarter: 2023Q1

REPORT INFORMATION
  Report Type: Spontaneous
  Country: US (occurrence: US)
  Receive Date: 20221125
  Receipt Date: 20230118
  Transmission Date: 20230417
  Serious: Yes (Other)
  Sender: FDA-Public Use
  Company Number: US-SA-SAC20221125000415

PATIENT
  Sex: Male

DRUGS (1)
  1. DUPIXENT [Suspect]
     Active Substance: DUPILUMAB
     Dosage: 300 MG, FREQUENY: OTHER
     Route: 058

REACTIONS (3)
  - Pericardial effusion [Recovering/Resolving]
  - Eye irritation [Unknown]
  - Injection site pain [Unknown]
